FAERS Safety Report 24018391 (Version 1)
Quarter: 2024Q2

REPORT INFORMATION
  Report Type: Spontaneous
  Country: US (occurrence: US)
  Receive Date: 20240627
  Receipt Date: 20240627
  Transmission Date: 20240716
  Serious: Yes (Other)
  Sender: FDA-Public Use
  Company Number: US-ABBVIE-5816068

PATIENT
  Sex: Male
  Weight: 85 kg

DRUGS (3)
  1. SYNTHROID [Suspect]
     Active Substance: LEVOTHYROXINE SODIUM
     Indication: Product used for unknown indication
     Route: 048
  2. GABAPENTIN [Concomitant]
     Active Substance: GABAPENTIN
     Indication: Product used for unknown indication
     Dosage: AT BEDTIME, DISP: 90 CAPSULE, RFL: 3
     Route: 048
  3. VYNDAMAX [Suspect]
     Active Substance: TAFAMIDIS
     Indication: Product used for unknown indication
     Dosage: IN THE?MORNING. TAKE BEFORE MEALS, TAKE 1 DAILY MONDAY-SATURDAY AND ON SUNDAY TAKE 1 1/2, DISP: 9...
     Route: 048

REACTIONS (5)
  - Pulmonary embolism [Unknown]
  - Cardiac amyloidosis [Unknown]
  - Sinus bradycardia [Unknown]
  - Bundle branch block left [Unknown]
  - Atrial fibrillation [Unknown]
